FAERS Safety Report 7380465-6 (Version None)
Quarter: 2011Q1

REPORT INFORMATION
  Report Type: 
  Country: None (occurrence: None)
  Receive Date: 20110329
  Receipt Date: 20110318
  Transmission Date: 20110831
  Serious: Yes (Hospitalization, Other)
  Sender: FDA-Public Use
  Company Number: US-JNJFOC-20110207438

PATIENT
  Sex: Female
  Weight: 50.8 kg

DRUGS (5)
  1. RISPERIDONE [Suspect]
     Indication: PRODUCT USED FOR UNKNOWN INDICATION
     Route: 065
  2. MULTIPLE VITAMIN [Concomitant]
     Indication: NUTRITIONAL SUPPORT
     Route: 065
  3. BACTRIM [Concomitant]
     Indication: ABSCESS
     Route: 065
  4. UNKNOWN MEDICATION [Suspect]
     Indication: SCHIZOPHRENIA
     Route: 065
  5. UNKNOWN MEDICATION [Concomitant]
     Route: 065

REACTIONS (4)
  - SCHIZOPHRENIA [None]
  - DELUSION [None]
  - HALLUCINATION, AUDITORY [None]
  - PSYCHOTIC DISORDER [None]
